FAERS Safety Report 9549951 (Version 2)
Quarter: 2013Q3

REPORT INFORMATION
  Report Type: Report from Study
  Country: BR (occurrence: BR)
  Receive Date: 20130924
  Receipt Date: 20130924
  Transmission Date: 20140515
  Serious: Yes (Death, Other)
  Sender: FDA-Public Use
  Company Number: ALCN2013BR002740

PATIENT
  Sex: 0

DRUGS (3)
  1. TRAVATAN [Suspect]
     Indication: GLAUCOMA
     Route: 047
     Dates: start: 2010
  2. PROLOPA [Concomitant]
     Indication: PARKINSON^S DISEASE
     Route: 048
  3. ALOIS [Concomitant]
     Indication: DEMENTIA ALZHEIMER^S TYPE
     Route: 048

REACTIONS (2)
  - Dementia Alzheimer^s type [Fatal]
  - Parkinson^s disease [Fatal]
